FAERS Safety Report 5055808-9 (Version None)
Quarter: 2006Q3

REPORT INFORMATION
  Report Type: 
  Country: None (occurrence: None)
  Receive Date: 20060718
  Receipt Date: 20060718
  Transmission Date: 20061208
  Serious: Yes (Hospitalization)
  Sender: FDA-Public Use
  Company Number: None

PATIENT
  Age: 59 Year
  Sex: Male
  Weight: 90.7 kg

DRUGS (2)
  1. FUROSEMIDE [Suspect]
  2. METOLAZONE [Suspect]

REACTIONS (14)
  - BLOOD CREATINE PHOSPHOKINASE INCREASED [None]
  - BLOOD CREATINE PHOSPHOKINASE MB INCREASED [None]
  - BLOOD ELECTROLYTES ABNORMAL [None]
  - BLOOD THYROID STIMULATING HORMONE INCREASED [None]
  - CONSTIPATION [None]
  - HYPOKALAEMIA [None]
  - HYPONATRAEMIA [None]
  - METABOLIC DISORDER [None]
  - NAUSEA [None]
  - NON-CARDIAC CHEST PAIN [None]
  - PAIN [None]
  - URINE ELECTROLYTES ABNORMAL [None]
  - URINE POTASSIUM ABNORMAL [None]
  - WEIGHT INCREASED [None]
